FAERS Safety Report 8840031 (Version 1)
Quarter: 2012Q4

REPORT INFORMATION
  Report Type: 
  Country: US (occurrence: US)
  Receive Date: 20121015
  Receipt Date: 20121015
  Transmission Date: 20130627
  Serious: No
  Sender: FDA-Public Use
  Company Number: US-PFIZER INC-2012252065

PATIENT
  Age: 26 Year
  Sex: Male
  Weight: 68.03 kg

DRUGS (3)
  1. GEODON [Suspect]
     Indication: BIPOLAR DISORDER
     Dosage: 20 mg, 1x/day
     Route: 048
     Dates: start: 20120914, end: 2012
  2. GEODON [Suspect]
     Dosage: 40 mg, 1x/day
     Route: 048
     Dates: start: 2012, end: 2012
  3. GEODON [Suspect]
     Dosage: UNK, 1x/day
     Route: 048
     Dates: start: 2012, end: 20121007

REACTIONS (1)
  - Malaise [Not Recovered/Not Resolved]
